FAERS Safety Report 5797717-3 (Version None)
Quarter: 2008Q3

REPORT INFORMATION
  Report Type: 
  Country: None (occurrence: None)
  Receive Date: 20080702
  Receipt Date: 20080627
  Transmission Date: 20090109
  Serious: Yes (Death, Life-Threatening, Hospitalization)
  Sender: FDA-Public Use
  Company Number: DE-BRISTOL-MYERS SQUIBB COMPANY-14245880

PATIENT
  Age: 62 Year
  Sex: Female
  Weight: 60 kg

DRUGS (7)
  1. ERBITUX [Suspect]
     Indication: COLORECTAL CANCER METASTATIC
     Route: 041
     Dates: start: 20080227, end: 20080227
  2. OXALIPLATIN [Suspect]
     Indication: COLORECTAL CANCER METASTATIC
     Route: 041
     Dates: start: 20080227, end: 20080227
  3. FLUOROURACIL [Suspect]
     Indication: COLORECTAL CANCER METASTATIC
     Route: 041
     Dates: start: 20080227, end: 20080228
  4. NOVAMIN [Suspect]
     Indication: COLORECTAL CANCER METASTATIC
     Route: 048
  5. CELEBREX [Suspect]
     Dosage: 800MG TOTAL.
  6. HEPARIN CALCIUM [Suspect]
  7. ONDANSETRON [Concomitant]

REACTIONS (1)
  - THROMBOCYTOPENIA [None]
